FAERS Safety Report 6270890-9 (Version None)
Quarter: 2009Q3

REPORT INFORMATION
  Report Type: 
  Country: None (occurrence: None)
  Receive Date: 20090716
  Receipt Date: 20090309
  Transmission Date: 20100115
  Serious: Yes (Death, Hospitalization)
  Sender: FDA-Public Use
  Company Number: IT-GENENTECH-216379

PATIENT
  Sex: Male
  Weight: 84 kg

DRUGS (6)
  1. BEVACIZUMAB [Suspect]
     Indication: COLON CANCER
     Dosage: 420 MG, Q14D
     Route: 042
     Dates: start: 20050704, end: 20050711
  2. OXALIPLATIN [Suspect]
     Indication: COLON CANCER
     Dosage: 165 MG, Q14D
     Route: 042
     Dates: start: 20050704, end: 20050711
  3. FLUOROURACIL [Suspect]
     Indication: COLON CANCER
     Dosage: 2320 MG, Q14D
     Dates: start: 20050704, end: 20050711
  4. FOLINIC ACID [Suspect]
     Indication: COLON CANCER
     Dosage: 380 MG, Q14D
     Route: 042
     Dates: start: 20050704, end: 20050711
  5. BENAZEPRIL HYDROCHLORIDE [Concomitant]
     Indication: DRUG USE FOR UNKNOWN INDICATION
  6. DOPAMINE HCL [Concomitant]
     Indication: DRUG USE FOR UNKNOWN INDICATION

REACTIONS (2)
  - ILEAL PERFORATION [None]
  - SHOCK [None]
